FAERS Safety Report 16739541 (Version 1)
Quarter: 2019Q3

REPORT INFORMATION
  Report Type: Spontaneous
  Country: DE (occurrence: DE)
  Receive Date: 20190826
  Receipt Date: 20190826
  Transmission Date: 20191005
  Serious: Yes (Hospitalization)
  Sender: FDA-Public Use
  Company Number: DE-DRREDDYS-GER/GER/19/0113358

PATIENT
  Age: 83 Year
  Sex: Female

DRUGS (21)
  1. TIOTROPIUMBROMID [Concomitant]
     Indication: PRODUCT USED FOR UNKNOWN INDICATION
     Dosage: 18 MCG, 1-0-0-0, DOSIERAEROSOL
     Route: 055
  2. AMOXICILLIN/CLAVULANSAURE [Concomitant]
     Indication: PRODUCT USED FOR UNKNOWN INDICATION
     Dosage: 875|125 MG, 1-0-1-0 EINNAHME EINSCHL. 07.02.2018 (875|125 MG, 1-0-1-0 INTAKE INCL. 07/FEB/2018)
     Dates: start: 20180207
  3. MACROGOL [Concomitant]
     Active Substance: POLYETHYLENE GLYCOLS
     Indication: PRODUCT USED FOR UNKNOWN INDICATION
     Dosage: 13.125 G, 1-0-0-0, PULVER (POWDER)
  4. MESALAZIN [Concomitant]
     Active Substance: MESALAMINE
     Indication: PRODUCT USED FOR UNKNOWN INDICATION
     Dosage: 500 MG, 1-0-0-0
  5. METOPROLOL. [Suspect]
     Active Substance: METOPROLOL
     Indication: PRODUCT USED FOR UNKNOWN INDICATION
     Dosage: 95 MG, 1-0-1-0
  6. DIGITOXIN [Suspect]
     Active Substance: DIGITOXIN
     Indication: PRODUCT USED FOR UNKNOWN INDICATION
     Dosage: 0.07 MG, 1-0-0-0
  7. HYDROCHLOROTHIAZIDE. [Concomitant]
     Active Substance: HYDROCHLOROTHIAZIDE
     Indication: PRODUCT USED FOR UNKNOWN INDICATION
     Dosage: 12.5 MG, 1-0-0-0
  8. VALSARTAN. [Concomitant]
     Active Substance: VALSARTAN
     Indication: PRODUCT USED FOR UNKNOWN INDICATION
     Dosage: 160 MG, 1-0-0-1
  9. FENOTEROL/ IPRATROPIUM [Concomitant]
     Indication: PRODUCT USED FOR UNKNOWN INDICATION
     Dosage: 50|21 MCG, 1-0-1-0, DOSIERAEROSOL
     Route: 055
  10. RANOLAZIN [Concomitant]
     Active Substance: RANOLAZINE
     Indication: PRODUCT USED FOR UNKNOWN INDICATION
     Dosage: 375 MG, 1-0-1-0
  11. BROMAZEPAM [Concomitant]
     Active Substance: BROMAZEPAM
     Indication: PRODUCT USED FOR UNKNOWN INDICATION
     Dosage: 3 MG, 0-0-0-1
  12. PANTOPRAZOLE [Concomitant]
     Active Substance: PANTOPRAZOLE
     Indication: PRODUCT USED FOR UNKNOWN INDICATION
     Dosage: 40 MG, 0-0-1-0
  13. INSULIN HUMAN [Concomitant]
     Active Substance: INSULIN HUMAN
     Indication: PRODUCT USED FOR UNKNOWN INDICATION
     Dosage: 100 IE/ML, 60-0-24-0, FERTIGSPRITZEN (100 IU/ML, 60-0-24-0, PRE-FILLED SYRINGES)
     Route: 058
  14. LEVOTHYROXINE SODIUM. [Concomitant]
     Active Substance: LEVOTHYROXINE SODIUM
     Indication: PRODUCT USED FOR UNKNOWN INDICATION
     Dosage: 75 MCG, 1-0-0-0
  15. INSULIN GLARGIN [Concomitant]
     Active Substance: INSULIN GLARGINE
     Indication: PRODUCT USED FOR UNKNOWN INDICATION
     Dosage: 66 IE, 0-0-1-0 19 UHR
  16. AMLODIPINE [Concomitant]
     Active Substance: AMLODIPINE BESYLATE
     Indication: PRODUCT USED FOR UNKNOWN INDICATION
     Dosage: 5 MG, 1-0-0-1
  17. TORASEMID [Concomitant]
     Active Substance: TORSEMIDE
     Indication: PRODUCT USED FOR UNKNOWN INDICATION
     Dosage: 20 MG, 1-0-0-0
  18. APIXABAN [Concomitant]
     Active Substance: APIXABAN
     Indication: PRODUCT USED FOR UNKNOWN INDICATION
     Dosage: 2.5 MG, 1-0-1-0
  19. MOXONIDINE [Concomitant]
     Active Substance: MOXONIDINE
     Indication: PRODUCT USED FOR UNKNOWN INDICATION
     Dosage: 0.2 MG, 1-0-1-0
  20. URAPIDIL [Concomitant]
     Active Substance: URAPIDIL
     Indication: PRODUCT USED FOR UNKNOWN INDICATION
     Dosage: 60 MG, 1-0-0-1
  21. ALLOPURINOL. [Concomitant]
     Active Substance: ALLOPURINOL
     Indication: PRODUCT USED FOR UNKNOWN INDICATION
     Dosage: 100 MG, 1-0-0-0

REACTIONS (4)
  - Bradycardia [Unknown]
  - Diarrhoea [Unknown]
  - Therapeutic drug monitoring analysis incorrectly performed [Unknown]
  - Vomiting [Unknown]
